FAERS Safety Report 13109498 (Version 1)
Quarter: 2017Q1

REPORT INFORMATION
  Report Type: Spontaneous
  Country: DE (occurrence: DE)
  Receive Date: 20170112
  Receipt Date: 20170112
  Transmission Date: 20170428
  Serious: Yes (Death)
  Sender: FDA-Public Use
  Company Number: DE-JNJFOC-20170108926

PATIENT
  Age: 79 Year
  Sex: Female
  Weight: 64 kg

DRUGS (7)
  1. METAMIZOLE [Concomitant]
     Active Substance: METAMIZOLE
     Indication: POSTOPERATIVE ANALGESIA
     Route: 048
     Dates: start: 20161025, end: 20161030
  2. BISOPROLOL [Concomitant]
     Active Substance: BISOPROLOL
     Route: 048
     Dates: start: 20161025, end: 20161030
  3. XARELTO [Suspect]
     Active Substance: RIVAROXABAN
     Indication: PRODUCT USED FOR UNKNOWN INDICATION
     Route: 048
     Dates: start: 20161025, end: 20161030
  4. DIMETINDENE [Concomitant]
     Active Substance: DIMETHINDENE
     Indication: DERMATITIS ALLERGIC
     Route: 048
     Dates: start: 20161029, end: 20161030
  5. SPIRONOLACTON [Concomitant]
     Active Substance: SPIRONOLACTONE
     Indication: OEDEMA
     Route: 048
     Dates: start: 20161025, end: 20161030
  6. LEVOTHYROXIN [Concomitant]
     Active Substance: LEVOTHYROXINE
     Indication: HYPOTHYROIDISM
     Route: 048
     Dates: start: 20161025, end: 20161030
  7. VALSARTAN. [Concomitant]
     Active Substance: VALSARTAN
     Indication: HYPERTENSION
     Route: 048
     Dates: start: 20161025, end: 20161030

REACTIONS (5)
  - Diplopia [Fatal]
  - Hemiparesis [Fatal]
  - Haemorrhagic transformation stroke [Fatal]
  - Cerebellar infarction [Fatal]
  - Disturbance in attention [Fatal]

NARRATIVE: CASE EVENT DATE: 20161030
